FAERS Safety Report 11087283 (Version 1)
Quarter: 2015Q2

REPORT INFORMATION
  Report Type: Report from Study
  Country: US (occurrence: US)
  Receive Date: 20150504
  Receipt Date: 20150504
  Transmission Date: 20150821
  Serious: Yes (Other)
  Sender: FDA-Public Use
  Company Number: US-BIOGENIDEC-2015BI055266

PATIENT
  Sex: Male
  Weight: 72 kg

DRUGS (7)
  1. BACLOFEN. [Concomitant]
     Active Substance: BACLOFEN
  2. TRILEPTAL [Concomitant]
     Active Substance: OXCARBAZEPINE
  3. LIDOCAINE. [Concomitant]
     Active Substance: LIDOCAINE
  4. KEPPRA [Concomitant]
     Active Substance: LEVETIRACETAM
  5. OXYCODONE [Concomitant]
     Active Substance: OXYCODONE
  6. LIDOCAINE. [Concomitant]
     Active Substance: LIDOCAINE
  7. TECFIDERA [Suspect]
     Active Substance: DIMETHYL FUMARATE
     Indication: MULTIPLE SCLEROSIS
     Route: 048
     Dates: start: 2013

REACTIONS (5)
  - Depressed mood [Not Recovered/Not Resolved]
  - Fall [Recovered/Resolved]
  - Hypoaesthesia [Not Recovered/Not Resolved]
  - Seizure [Not Recovered/Not Resolved]
  - Pain [Not Recovered/Not Resolved]
